FAERS Safety Report 18229507 (Version 1)
Quarter: 2020Q3

REPORT INFORMATION
  Report Type: Spontaneous
  Country: DE (occurrence: DE)
  Receive Date: 20200903
  Receipt Date: 20200903
  Transmission Date: 20201103
  Serious: Yes (Other)
  Sender: FDA-Public Use
  Company Number: DE-BAUSCH-BL-2020-025127

PATIENT
  Age: 42 Year
  Sex: Male

DRUGS (3)
  1. VENLAFAXINE [Suspect]
     Active Substance: VENLAFAXINE HYDROCHLORIDE
     Dosage: UNTIL FURTHER NOTICE?ADRS ONSET AT THIS DOSE
     Route: 065
     Dates: start: 20200228
  2. VENLAFAXINE [Suspect]
     Active Substance: VENLAFAXINE HYDROCHLORIDE
     Indication: PRODUCT USED FOR UNKNOWN INDICATION
     Dosage: FOR A LONG TIME
     Route: 065
     Dates: end: 20200227
  3. MIRTAZAPINE. [Concomitant]
     Active Substance: MIRTAZAPINE
     Indication: PRODUCT USED FOR UNKNOWN INDICATION
     Dosage: FOR THE TIME BEING
     Dates: start: 20200221

REACTIONS (9)
  - Dysarthria [Recovered/Resolved]
  - Apathy [Recovered/Resolved]
  - Memory impairment [Recovered/Resolved]
  - Joint stiffness [Recovered/Resolved]
  - Hypoaesthesia [Recovered/Resolved]
  - Epistaxis [Recovered/Resolved]
  - Head discomfort [Recovered/Resolved]
  - Headache [Recovered/Resolved]
  - Disturbance in attention [Recovered/Resolved]

NARRATIVE: CASE EVENT DATE: 202003
